FAERS Safety Report 19631718 (Version 1)
Quarter: 2021Q3

REPORT INFORMATION
  Report Type: Spontaneous
  Country: US (occurrence: US)
  Receive Date: 20210729
  Receipt Date: 20210729
  Transmission Date: 20211014
  Serious: Yes (Other)
  Sender: FDA-Public Use
  Company Number: US-TEVA-2021-US-1936619

PATIENT
  Sex: Female

DRUGS (5)
  1. APOKYN [Suspect]
     Active Substance: APOMORPHINE HYDROCHLORIDE
     Route: 065
  2. CARBIDOPA/LEVODOPA [Suspect]
     Active Substance: CARBIDOPA\LEVODOPA
     Dosage: INCREASED DOSE
     Route: 065
  3. CARBIDOPA/LEVODOPA [Suspect]
     Active Substance: CARBIDOPA\LEVODOPA
     Dosage: CHANGED DOSE OF CARBIDOPA/ LEVODOPA
     Route: 065
  4. CARBIDOPA/LEVODOPA [Suspect]
     Active Substance: CARBIDOPA\LEVODOPA
     Route: 065
  5. APOKYN [Suspect]
     Active Substance: APOMORPHINE HYDROCHLORIDE
     Dosage: INCREASED DOSE
     Route: 065

REACTIONS (7)
  - Dysphonia [Unknown]
  - Fall [Unknown]
  - Gait disturbance [Unknown]
  - Malaise [Unknown]
  - Movement disorder [Unknown]
  - Parkinson^s disease [Unknown]
  - Freezing phenomenon [Unknown]
